FAERS Safety Report 8486344-5 (Version None)
Quarter: 2012Q3

REPORT INFORMATION
  Report Type: 
  Country: None (occurrence: None)
  Receive Date: 20120703
  Receipt Date: 20120626
  Transmission Date: 20120928
  Serious: Yes (Other)
  Sender: FDA-Public Use
  Company Number: US-GLAXOSMITHKLINE-A0982464A

PATIENT
  Age: 50 Year
  Sex: Male

DRUGS (5)
  1. PROVENTIL [Concomitant]
  2. SPIRIVA [Concomitant]
  3. ANTIBIOTICS [Concomitant]
  4. ADVAIR DISKUS 100/50 [Suspect]
     Indication: CHRONIC OBSTRUCTIVE PULMONARY DISEASE
     Dosage: 1PUFF TWICE PER DAY
     Route: 055
     Dates: start: 20120101, end: 20120616
  5. VITAMIN [Concomitant]

REACTIONS (4)
  - PNEUMONIA [None]
  - NON-CARDIAC CHEST PAIN [None]
  - PYREXIA [None]
  - BACK PAIN [None]
